FAERS Safety Report 12213317 (Version 1)
Quarter: 2016Q1

REPORT INFORMATION
  Report Type: Spontaneous
  Country: DE (occurrence: DE)
  Receive Date: 20160328
  Receipt Date: 20160328
  Transmission Date: 20160526
  Serious: Yes (Other)
  Sender: FDA-Public Use
  Company Number: DE-ASTRAZENECA-2016SE30859

PATIENT
  Age: 33 Year
  Sex: Female
  Weight: 120 kg

DRUGS (4)
  1. SEROQUEL XR [Suspect]
     Active Substance: QUETIAPINE FUMARATE
     Indication: SLEEP DISORDER
     Route: 048
     Dates: start: 20150125, end: 20151029
  2. PARACETAMOL [Concomitant]
     Active Substance: ACETAMINOPHEN
     Indication: PAIN
     Dosage: 500 [MG/D ]/ ON DEMAND; 2 TO 3 TABLETS PER WEEK
     Route: 048
  3. SERTRALINE [Concomitant]
     Active Substance: SERTRALINE HYDROCHLORIDE
     Indication: DEPRESSION
     Route: 048
     Dates: start: 20150125, end: 20151029
  4. IBUFLAM [Concomitant]
     Active Substance: IBUPROFEN
     Indication: PAIN
     Dosage: 800 [MG/D ]/ SINCE 2007; ON DEMAND ONLY: 800 OR 400 MG/D
     Route: 048
     Dates: start: 2007

REACTIONS (3)
  - Blood pressure increased [Unknown]
  - Exposure during pregnancy [Unknown]
  - Gestational diabetes [Recovered/Resolved]
